FAERS Safety Report 4509600-1 (Version None)
Quarter: 2004Q4

REPORT INFORMATION
  Report Type: 
  Country: None (occurrence: None)
  Receive Date: 20041119
  Receipt Date: 20041104
  Transmission Date: 20050328
  Serious: Yes (Hospitalization)
  Sender: FDA-Public Use
  Company Number: 207349

PATIENT
  Age: 39 Year
  Sex: Female
  Weight: 78.0187 kg

DRUGS (11)
  1. AVONEX [Suspect]
     Indication: MULTIPLE SCLEROSIS
     Dosage: 30 MCG QW IM
     Route: 030
     Dates: start: 19970101, end: 20030801
  2. AVONEX [Suspect]
     Indication: MULTIPLE SCLEROSIS
     Dosage: 30 MCG QW IM
     Route: 030
     Dates: start: 20030801
  3. PREMARIN [Concomitant]
  4. ANTIDEPRESSANTS (NOS) [Concomitant]
  5. LODINE [Concomitant]
  6. KLONOPIN [Concomitant]
  7. CARDIZEM [Concomitant]
  8. VASOTEC [Concomitant]
  9. NITROGLYCERIN [Concomitant]
  10. ZONEGRAN [Concomitant]
  11. SYNTRHOID [Concomitant]

REACTIONS (22)
  - ANGINA PECTORIS [None]
  - ARTHRALGIA [None]
  - ASTHENIA [None]
  - BALANCE DISORDER [None]
  - BONE DISORDER [None]
  - CHEST PAIN [None]
  - CONTUSION [None]
  - DYSPNOEA [None]
  - ERYTHEMA [None]
  - EXCORIATION [None]
  - FALL [None]
  - GASTRIC ULCER [None]
  - HYPERCHOLESTEROLAEMIA [None]
  - HYPOAESTHESIA [None]
  - INJECTION SITE HAEMORRHAGE [None]
  - INJECTION SITE PAIN [None]
  - JOINT DISLOCATION [None]
  - JOINT SPRAIN [None]
  - PAIN [None]
  - STRESS SYMPTOMS [None]
  - TOTAL HYSTERECTOMY [None]
  - VISUAL ACUITY REDUCED [None]
